FAERS Safety Report 6009211-5 (Version None)
Quarter: 2008Q4

REPORT INFORMATION
  Report Type: 
  Country: None (occurrence: None)
  Receive Date: 20081217
  Receipt Date: 20080922
  Transmission Date: 20090506
  Serious: Yes (Hospitalization)
  Sender: FDA-Public Use
  Company Number: US-AMGEN-QUU307706

PATIENT
  Sex: Female

DRUGS (2)
  1. ENBREL [Suspect]
     Indication: RHEUMATOID ARTHRITIS
     Route: 058
     Dates: start: 20070601
  2. ENBREL [Suspect]
     Indication: PSORIASIS

REACTIONS (3)
  - FIBROMYALGIA [None]
  - HELICOBACTER INFECTION [None]
  - PANCREATITIS RELAPSING [None]
